FAERS Safety Report 6510070-2 (Version None)
Quarter: 2009Q4

REPORT INFORMATION
  Report Type: 
  Country: None (occurrence: None)
  Receive Date: 20091222
  Receipt Date: 20091117
  Transmission Date: 20100525
  Serious: No
  Sender: FDA-Public Use
  Company Number: US-BAUSCH-2009BL006120

PATIENT
  Age: 65 Year
  Sex: Female

DRUGS (4)
  1. BESIVANCE [Suspect]
     Indication: CONJUNCTIVITIS BACTERIAL
     Route: 047
     Dates: start: 20091103, end: 20091103
  2. XALATAN /SWE/ [Concomitant]
     Indication: GLAUCOMA
     Route: 047
  3. TIMOLOL MALEATE [Concomitant]
     Indication: GLAUCOMA
     Route: 047
  4. ALPHAGAN [Concomitant]
     Indication: GLAUCOMA
     Route: 047

REACTIONS (2)
  - HYPERSENSITIVITY [None]
  - INAPPROPRIATE SCHEDULE OF DRUG ADMINISTRATION [None]
